FAERS Safety Report 23490369 (Version 10)
Quarter: 2024Q3

REPORT INFORMATION
  Report Type: Report from Study
  Country: CA (occurrence: CA)
  Receive Date: 20240206
  Receipt Date: 20240919
  Transmission Date: 20241017
  Serious: Yes (Hospitalization, Other)
  Sender: GLAXOSMITHKLINE
  Company Number: CA-GLAXOSMITHKLINE-CA2023156892

PATIENT

DRUGS (14)
  1. MEPOLIZUMAB [Suspect]
     Active Substance: MEPOLIZUMAB
     Indication: Asthma
     Dosage: 100 MG, Q4W
     Route: 058
     Dates: start: 20231110
  2. MEPOLIZUMAB [Suspect]
     Active Substance: MEPOLIZUMAB
     Indication: Asthma
     Dosage: 100 MG, Q4W
     Route: 058
  3. MEPOLIZUMAB [Suspect]
     Active Substance: MEPOLIZUMAB
     Indication: Asthma
     Dosage: 100 MG, Q4W
     Route: 058
  4. MEPOLIZUMAB [Suspect]
     Active Substance: MEPOLIZUMAB
     Indication: Asthma
     Dosage: 100 MG, Q4W
     Route: 058
  5. MEPOLIZUMAB [Suspect]
     Active Substance: MEPOLIZUMAB
     Indication: Asthma
     Dosage: 100 MG, Q4W
     Route: 058
  6. MEPOLIZUMAB [Suspect]
     Active Substance: MEPOLIZUMAB
     Indication: Asthma
     Dosage: 100 MG, Q4W
     Route: 058
     Dates: end: 20240625
  7. INFLUENZA VIRUS VACCINE [Suspect]
     Active Substance: INFLUENZA VIRUS VACCINE
     Indication: Prophylaxis
     Dosage: UNK
  8. COVID-19 VACCINE NOS [Suspect]
     Active Substance: COVID-19 VACCINE
     Indication: Prophylaxis
     Dosage: UNK
  9. BREZTRI [Concomitant]
     Active Substance: BUDESONIDE\FORMOTEROL\GLYCOPYRROLATE
     Indication: Product used for unknown indication
     Dosage: 2 PUFF(S), BID, 182/8.2/5.8
     Route: 055
  10. VENTOLIN [Concomitant]
     Active Substance: ALBUTEROL SULFATE
     Indication: Product used for unknown indication
     Dosage: UNK
  11. PREDNISONE [Concomitant]
     Active Substance: PREDNISONE
     Indication: Product used for unknown indication
     Dosage: 11 MG, QD
  12. PREDNISONE [Concomitant]
     Active Substance: PREDNISONE
     Dosage: 10 MG, QD (DIE)
     Route: 048
  13. GLICLAZIDE [Concomitant]
     Active Substance: GLICLAZIDE
     Indication: Product used for unknown indication
     Dosage: 30 MG, QD
     Route: 048
     Dates: start: 20231125
  14. CORTISONE [Concomitant]
     Active Substance: CORTISONE
     Indication: Product used for unknown indication
     Dosage: 6 MG, QD
     Route: 048

REACTIONS (22)
  - Respiratory disorder [Unknown]
  - Hospitalisation [Not Recovered/Not Resolved]
  - Cataract [Unknown]
  - Oropharyngeal pain [Unknown]
  - Ear pain [Unknown]
  - Insomnia [Unknown]
  - Epistaxis [Unknown]
  - Nasal dryness [Unknown]
  - Injection site bruising [Unknown]
  - Dyspnoea [Recovering/Resolving]
  - Fatigue [Not Recovered/Not Resolved]
  - Chronic obstructive pulmonary disease [Unknown]
  - Eosinophil count decreased [Unknown]
  - Blood glucose decreased [Unknown]
  - Malaise [Unknown]
  - Petechiae [Unknown]
  - Weight decreased [Unknown]
  - Feeding disorder [Unknown]
  - Decreased appetite [Unknown]
  - Chest pain [Unknown]
  - Cough [Unknown]
  - General physical condition abnormal [Unknown]
